FAERS Safety Report 7106330-7 (Version None)
Quarter: 2010Q4

REPORT INFORMATION
  Report Type: 
  Country: None (occurrence: None)
  Receive Date: 20101116
  Receipt Date: 20101108
  Transmission Date: 20110411
  Serious: Yes (Other)
  Sender: FDA-Public Use
  Company Number: ES-ROCHE-720979

PATIENT
  Age: 55 Year
  Sex: Female

DRUGS (4)
  1. HERCEPTIN [Suspect]
     Route: 065
     Dates: end: 20090701
  2. HERCEPTIN [Suspect]
     Dosage: FREQUENCY: CYCLES
     Route: 065
     Dates: start: 20090801
  3. LAPATINIB [Suspect]
     Route: 065
     Dates: start: 20090801
  4. TAXOL [Suspect]
     Route: 065
     Dates: end: 20090701

REACTIONS (4)
  - DISEASE PROGRESSION [None]
  - GENERAL PHYSICAL HEALTH DETERIORATION [None]
  - THERAPEUTIC RESPONSE DECREASED [None]
  - URINARY TRACT INFECTION [None]
